FAERS Safety Report 16978617 (Version 5)
Quarter: 2020Q1

REPORT INFORMATION
  Report Type: Spontaneous
  Country: US (occurrence: US)
  Receive Date: 20191031
  Receipt Date: 20200121
  Transmission Date: 20200409
  Serious: No
  Sender: FDA-Public Use
  Company Number: US-ELI_LILLY_AND_COMPANY-US201910011293

PATIENT
  Age: 66 Year
  Sex: Female

DRUGS (8)
  1. TRAZODONE [Concomitant]
     Active Substance: TRAZODONE HYDROCHLORIDE
     Indication: PRODUCT USED FOR UNKNOWN INDICATION
     Dosage: UNK, UNKNOWN
     Route: 065
  2. TRULICITY [Suspect]
     Active Substance: DULAGLUTIDE
     Indication: VULVOVAGINAL PRURITUS
     Dosage: 1.5 MG, WEEKLY (1/W)
     Route: 058
  3. TRULICITY [Suspect]
     Active Substance: DULAGLUTIDE
     Indication: VULVOVAGINAL PAIN
     Dosage: 1.5 MG, WEEKLY (1/W)
     Route: 058
  4. TRULICITY [Suspect]
     Active Substance: DULAGLUTIDE
     Indication: VAGINAL ODOUR
     Dosage: 1.5 MG, WEEKLY (1/W)
     Route: 058
     Dates: start: 201905
  5. TRULICITY [Suspect]
     Active Substance: DULAGLUTIDE
     Indication: MUSCULOSKELETAL PAIN
     Dosage: 1.5 MG, WEEKLY (1/W)
     Route: 058
  6. TRULICITY [Suspect]
     Active Substance: DULAGLUTIDE
     Indication: SWELLING
  7. TRULICITY [Suspect]
     Active Substance: DULAGLUTIDE
     Indication: PRURITUS
  8. TRULICITY [Suspect]
     Active Substance: DULAGLUTIDE
     Indication: VULVOVAGINAL SWELLING
     Dosage: 1.5 MG, WEEKLY (1/W)
     Route: 058

REACTIONS (19)
  - Musculoskeletal discomfort [Not Recovered/Not Resolved]
  - Swelling [Unknown]
  - Oral discomfort [Not Recovered/Not Resolved]
  - Skin induration [Unknown]
  - Off label use [Unknown]
  - Vaginal odour [Not Recovered/Not Resolved]
  - Vulvovaginal swelling [Not Recovered/Not Resolved]
  - Pruritus [Unknown]
  - Vulvovaginal pain [Not Recovered/Not Resolved]
  - Dry skin [Not Recovered/Not Resolved]
  - Fungal infection [Unknown]
  - Lip dry [Not Recovered/Not Resolved]
  - Alopecia [Unknown]
  - Vulvovaginal burning sensation [Not Recovered/Not Resolved]
  - Vulvovaginal pruritus [Not Recovered/Not Resolved]
  - Chest pain [Not Recovered/Not Resolved]
  - Musculoskeletal pain [Unknown]
  - Lip erythema [Unknown]
  - Burning sensation [Not Recovered/Not Resolved]

NARRATIVE: CASE EVENT DATE: 201905
